FAERS Safety Report 6774565-9 (Version None)
Quarter: 2010Q2

REPORT INFORMATION
  Report Type: 
  Country: None (occurrence: None)
  Receive Date: 20100617
  Receipt Date: 20100608
  Transmission Date: 20101027
  Serious: Yes (Disabling)
  Sender: FDA-Public Use
  Company Number: IT-MPIJNJ-2010-02309

PATIENT

DRUGS (6)
  1. VELCADE [Suspect]
     Indication: MULTIPLE MYELOMA
     Dosage: 2.4 MG, UNK
     Route: 042
     Dates: start: 20090728, end: 20091009
  2. ATENOLOL [Concomitant]
     Route: 048
  3. LYRICA [Concomitant]
     Dosage: 150 MG, UNK
     Route: 048
     Dates: start: 20091019, end: 20091112
  4. LASIX [Concomitant]
     Dosage: 25 MG, UNK
     Route: 048
  5. DEXAMETHASONE [Concomitant]
     Dosage: 20 MG, UNK
     Route: 048
     Dates: start: 20090728, end: 20091009
  6. DEXAMETHASONE [Concomitant]
     Dosage: 20 MG, UNK
     Route: 042
     Dates: start: 20090728, end: 20091009

REACTIONS (1)
  - DEMYELINATING POLYNEUROPATHY [None]
